FAERS Safety Report 6665384-2 (Version None)
Quarter: 2010Q1

REPORT INFORMATION
  Report Type: 
  Country: None (occurrence: None)
  Receive Date: 20100323
  Receipt Date: 20100129
  Transmission Date: 20100710
  Serious: No
  Sender: FDA-Public Use
  Company Number: 100208-0000164

PATIENT
  Age: 8 Year
  Sex: Male

DRUGS (1)
  1. SABRIL [Suspect]
     Indication: DRUG USE FOR UNKNOWN INDICATION
     Dates: start: 20100111

REACTIONS (1)
  - CONSTIPATION [None]
